FAERS Safety Report 6781502-X (Version None)
Quarter: 2010Q2

REPORT INFORMATION
  Report Type: 
  Country: None (occurrence: None)
  Receive Date: 20100617
  Receipt Date: 20100617
  Transmission Date: 20101027
  Serious: Yes (Other)
  Sender: FDA-Public Use
  Company Number: None

PATIENT
  Age: 33 Year
  Sex: Female
  Weight: 94.3482 kg

DRUGS (2)
  1. ULTRAM [Suspect]
     Indication: FIBROMYALGIA
     Dosage: Q6 PRN 6/4/10 QA (ONLY DOSE)
     Dates: start: 20100604
  2. ULTRAM [Suspect]
     Indication: HEADACHE
     Dosage: Q6 PRN 6/4/10 QA (ONLY DOSE)
     Dates: start: 20100604

REACTIONS (5)
  - DYSPNOEA [None]
  - ERYTHEMA [None]
  - OEDEMA PERIPHERAL [None]
  - PRURITUS GENERALISED [None]
  - RASH [None]
